FAERS Safety Report 6786746-9 (Version None)
Quarter: 2010Q2

REPORT INFORMATION
  Report Type: 
  Country: None (occurrence: None)
  Receive Date: 20100623
  Receipt Date: 20100610
  Transmission Date: 20101027
  Serious: Yes (Hospitalization, Disabling, Other)
  Sender: FDA-Public Use
  Company Number: US-ELI_LILLY_AND_COMPANY-US200911006330

PATIENT
  Sex: Female
  Weight: 113.38 kg

DRUGS (7)
  1. ZYPREXA [Suspect]
     Indication: BIPOLAR DISORDER
     Dosage: 1 D/F, UNK
  2. ZYPREXA [Suspect]
     Dosage: 10 MG, DAILY (1/D)
  3. ZYPREXA [Suspect]
     Dosage: 15 MG, QOD
  4. ZYPREXA [Suspect]
     Dosage: 5 MG, QOD
     Route: 048
  5. QUETIAPINE FUMARATE [Concomitant]
  6. ATENOLOL [Concomitant]
  7. WELLBUTRIN [Concomitant]
     Dosage: 150 MG, 2/D
     Route: 048

REACTIONS (15)
  - BLOOD CHOLESTEROL INCREASED [None]
  - BLOOD TRIGLYCERIDES INCREASED [None]
  - DIABETES MELLITUS [None]
  - HYPERTENSION [None]
  - HYPOAESTHESIA [None]
  - IMPAIRED HEALING [None]
  - MENORRHAGIA [None]
  - NEUROPATHY PERIPHERAL [None]
  - OEDEMA PERIPHERAL [None]
  - PERIPHERAL COLDNESS [None]
  - POOR PERIPHERAL CIRCULATION [None]
  - SKIN DISCOLOURATION [None]
  - SKIN LESION [None]
  - URINARY TRACT INFECTION [None]
  - WEIGHT INCREASED [None]
